FAERS Safety Report 16596687 (Version 1)
Quarter: 2019Q3

REPORT INFORMATION
  Report Type: Spontaneous
  Country: DE (occurrence: DE)
  Receive Date: 20190719
  Receipt Date: 20190719
  Transmission Date: 20191004
  Serious: Yes (Hospitalization)
  Sender: FDA-Public Use
  Company Number: DE-ACCORD-139012

PATIENT
  Age: 61 Year
  Sex: Female
  Weight: 63 kg

DRUGS (10)
  1. METAMIZOLE SODIUM [Concomitant]
     Active Substance: METAMIZOLE SODIUM
     Dosage: 40 GGT, 1-1-1-1, DROPS
     Route: 048
  2. CETUXIMAB. [Suspect]
     Active Substance: CETUXIMAB
     Indication: PRODUCT USED FOR UNKNOWN INDICATION
     Dosage: 400 MG / M2, ACCORDING TO SCHEME, MOST RECENTLY ON 08.03.2018, SOLUTION?FOR INJECTION / INFUSION
     Route: 042
  3. TARGIN [Concomitant]
     Active Substance: NALOXONE HYDROCHLORIDE\OXYCODONE HYDROCHLORIDE
     Route: 048
  4. RISPERIDONE. [Concomitant]
     Active Substance: RISPERIDONE
     Dosage: 0.5 MG, 0-0-1-0, TABLET
     Route: 048
  5. ENOXAPARIN [Concomitant]
     Active Substance: ENOXAPARIN
     Dosage: 0.4 ML, 1-0-0-0, SOLUTION FOR INJECTION / INFUSION
     Route: 058
  6. FLUOROURACIL. [Suspect]
     Active Substance: FLUOROURACIL
     Indication: PRODUCT USED FOR UNKNOWN INDICATION
     Dosage: 1000 MG / M2, ACCORDING TO SCHEME, MOST RECENTLY ON 08.03.2018, SOLUTION?FOR INJECTION / INFUSION
     Route: 042
  7. CISPLATIN. [Suspect]
     Active Substance: CISPLATIN
     Indication: PRODUCT USED FOR UNKNOWN INDICATION
     Dosage: 100 MG / M2, ACCORDING TO SCHEME, MOST RECENTLY ON 08.03.2018, SOLUTION?FOR INJECTION / INFUSION
     Route: 042
  8. OMEPRAZOLE. [Concomitant]
     Active Substance: OMEPRAZOLE
     Dosage: 20 MG, 1-0-0-0, TABLET
     Route: 048
  9. TORASEMIDE [Concomitant]
     Active Substance: TORSEMIDE
     Dosage: 10 MG, 1-0-0-0, TABLET
     Route: 048
  10. HYDROCHLOROTHIAZIDE. [Concomitant]
     Active Substance: HYDROCHLOROTHIAZIDE
     Dosage: 25 MG, 1-0-0-0, TABLET
     Route: 048

REACTIONS (6)
  - Electrolyte imbalance [Unknown]
  - Dizziness [Unknown]
  - Neutropenia [Unknown]
  - Pyrexia [Unknown]
  - Diarrhoea [Unknown]
  - Leukopenia [Unknown]
